FAERS Safety Report 6657729-4 (Version None)
Quarter: 2010Q1

REPORT INFORMATION
  Report Type: 
  Country: None (occurrence: None)
  Receive Date: 20100325
  Receipt Date: 20091101
  Transmission Date: 20100710
  Serious: Yes (Hospitalization)
  Sender: FDA-Public Use
  Company Number: 1-20596969

PATIENT
  Age: 21 Year
  Sex: Male

DRUGS (1)
  1. CYCLOBENZAPRINE (STRENGTH AND MANUFACTURER UNKNOWN) [Suspect]
     Indication: BACK PAIN
     Dosage: 30 MG DAILY, ORAL
     Route: 048

REACTIONS (7)
  - BLOOD BILIRUBIN INCREASED [None]
  - ELECTROENCEPHALOGRAM ABNORMAL [None]
  - HEART RATE INCREASED [None]
  - MYOCLONUS [None]
  - NYSTAGMUS [None]
  - PROTEIN TOTAL INCREASED [None]
  - TORTICOLLIS [None]
